FAERS Safety Report 8273737-4 (Version None)
Quarter: 2012Q2

REPORT INFORMATION
  Report Type: 
  Country: None (occurrence: None)
  Receive Date: 20120409
  Receipt Date: 20120409
  Transmission Date: 20120825
  Serious: No
  Sender: FDA-Public Use
  Company Number: None

PATIENT
  Sex: Female
  Weight: 54.1 kg

DRUGS (2)
  1. BEVACIZUMAB (RHUMAB VEGF) [Suspect]
     Dosage: 540 MG
  2. ELOXATIN [Suspect]
     Dosage: 208 MG

REACTIONS (1)
  - BLOOD POTASSIUM DECREASED [None]
